FAERS Safety Report 24586754 (Version 1)
Quarter: 2024Q4

REPORT INFORMATION
  Report Type: Spontaneous
  Country: GB (occurrence: GB)
  Receive Date: 20241107
  Receipt Date: 20241107
  Transmission Date: 20250115
  Serious: Yes (Other)
  Sender: TEVA
  Company Number: GB-MHRA-TPP10672133C7016075YC1730364182995

PATIENT
  Age: 77 Year
  Sex: Male
  Weight: 63 kg

DRUGS (12)
  1. DOXYCYCLINE [Suspect]
     Active Substance: DOXYCYCLINE
     Indication: Ill-defined disorder
     Dosage: TWO NOW THEN ONE DAILY, TPP YC - PLEASE RECLASSIFY
     Route: 065
     Dates: start: 20240621
  2. SIMPLA [Concomitant]
     Indication: Ill-defined disorder
     Dosage: USE AS DIRECTED, TPP YC - PLEASE RECLASSIFY
     Dates: start: 20240510
  3. AMLODIPINE [Concomitant]
     Active Substance: AMLODIPINE BESYLATE
     Indication: Ill-defined disorder
     Dosage: TPP YC - PLEASE RECLASSIFY
     Dates: start: 20240621
  4. CLARITHROMYCIN [Concomitant]
     Active Substance: CLARITHROMYCIN
     Indication: Ill-defined disorder
     Dosage: TO TREA..., TPP YC - PLEASE RECLASSIFY
     Dates: start: 20241030
  5. ALBUTEROL [Concomitant]
     Active Substance: ALBUTEROL
     Indication: Ill-defined disorder
     Dosage: INHALE ONE TO TWO DOSES UP TO FOUR TIMES A DAY ..., TPP YC - PLEASE RECLASSIFY
     Route: 055
     Dates: start: 20240621
  6. SPIRIT [Concomitant]
     Indication: Ill-defined disorder
     Dosage: USE AS DIRECTED, TPP YC - PLEASE RECLASSIFY
     Dates: start: 20240510
  7. MORPHINE SULFATE [Concomitant]
     Active Substance: MORPHINE SULFATE
     Indication: Ill-defined disorder
     Dosage: 5ML EVERY 4-6 HOURS, AS REQUIRED FOR BREAKTHROU..., TPP YC - PLEASE RECLASSIFY
     Dates: start: 20230721
  8. ACETAMINOPHEN [Concomitant]
     Active Substance: ACETAMINOPHEN
     Indication: Ill-defined disorder
     Dosage: TAKE 1 OR 2, UP TO 4 TIMES/DAY, TPP YC - PLEASE RECLASSIFY
     Dates: start: 20240621
  9. BECLOMETHASONE\FORMOTEROL [Concomitant]
     Active Substance: BECLOMETHASONE\FORMOTEROL
     Indication: Ill-defined disorder
     Dosage: PLEASE RETURN YOU..., TPP YC - PLEASE RECLASSIFY
     Route: 055
     Dates: start: 20240621
  10. PREDNISOLONE [Concomitant]
     Active Substance: PREDNISOLONE
     Indication: Ill-defined disorder
     Dosage: TAKE SIX TABLETS AS A SINGLE DOSE ONCE DAILY IN..., TPP YC - PLEASE RECLASSIFY
     Dates: start: 20240510
  11. INDAPAMIDE [Concomitant]
     Active Substance: INDAPAMIDE
     Indication: Ill-defined disorder
     Dosage: EACH MORNING, TPP YC - PLEASE RECLASSIFY
     Dates: start: 20240621
  12. MORPHINE SULFATE [Concomitant]
     Active Substance: MORPHINE SULFATE
     Indication: Ill-defined disorder
     Dosage: TAKE THREE (30MG) EVERY 12 HRS, TPP YC - PLEASE RECLASSIFY
     Dates: start: 20240621

REACTIONS (2)
  - Swollen tongue [Recovered/Resolved]
  - Rash [Recovered/Resolved]

NARRATIVE: CASE EVENT DATE: 20241031
